FAERS Safety Report 5221876-4 (Version None)
Quarter: 2007Q1

REPORT INFORMATION
  Report Type: 
  Country: None (occurrence: None)
  Receive Date: 20070129
  Receipt Date: 20070117
  Transmission Date: 20070707
  Serious: Yes (Other)
  Sender: FDA-Public Use
  Company Number: PHNU2007DE00573

PATIENT
  Sex: Female

DRUGS (4)
  1. ZOMETA [Suspect]
     Indication: METASTASES TO BONE
     Dosage: 4 MG, UNK
     Route: 042
     Dates: start: 20030401, end: 20050701
  2. AREDIA [Suspect]
     Indication: METASTASES TO BONE
     Route: 042
     Dates: start: 20020201, end: 20030401
  3. TAMOXIFEN CITRATE [Concomitant]
     Route: 065
  4. ARIMIDEX [Concomitant]
     Route: 048

REACTIONS (2)
  - OSTEONECROSIS [None]
  - RADICULAR CYST [None]
